FAERS Safety Report 9941127 (Version 1)
Quarter: 2014Q1

REPORT INFORMATION
  Report Type: Spontaneous
  Country: US (occurrence: US)
  Receive Date: 20140303
  Receipt Date: 20140303
  Transmission Date: 20141002
  Serious: No
  Sender: FDA-Public Use
  Company Number: US-ABBVIE-13P-163-1043248-00

PATIENT
  Sex: Female
  Weight: 108.96 kg

DRUGS (6)
  1. HUMIRA [Suspect]
     Indication: PSORIASIS
  2. CRESTOR [Concomitant]
     Indication: BLOOD CHOLESTEROL
  3. PAXIL [Concomitant]
     Indication: STRESS
  4. TERAZOSINE [Concomitant]
     Indication: PROSTATOMEGALY
  5. PROTONIX [Concomitant]
     Indication: GASTROOESOPHAGEAL REFLUX DISEASE
  6. METOPROLOL [Concomitant]
     Indication: BLOOD PRESSURE

REACTIONS (2)
  - Calcinosis [Not Recovered/Not Resolved]
  - Calcinosis [Not Recovered/Not Resolved]
